FAERS Safety Report 7454856-9 (Version None)
Quarter: 2011Q2

REPORT INFORMATION
  Report Type: 
  Country: None (occurrence: None)
  Receive Date: 20110503
  Receipt Date: 20110426
  Transmission Date: 20111010
  Serious: Yes (Other)
  Sender: FDA-Public Use
  Company Number: US-BRISTOL-MYERS SQUIBB COMPANY-15697774

PATIENT
  Age: 45 Year
  Sex: Female
  Weight: 107 kg

DRUGS (10)
  1. ABILIFY [Suspect]
     Indication: BIPOLAR DISORDER
     Dosage: 2.5MG QD JAN06,
     Dates: start: 20051201
  2. TOPIRAMATE [Concomitant]
  3. LAMOTRIGINE [Concomitant]
  4. POTASSIUM CITRATE [Concomitant]
  5. FENOFIBRATE [Concomitant]
  6. ASPIRIN [Concomitant]
  7. GABAPENTIN [Concomitant]
  8. BUSPIRONE HCL [Concomitant]
  9. LISINOPRIL [Suspect]
     Indication: PROTEINURIA
     Dosage: ON 25APR11 10 MG 1/2 TAB
     Dates: start: 20110422
  10. METFORMIN HYDROCHLORIDE [Concomitant]

REACTIONS (2)
  - RENAL VESSEL DISORDER [None]
  - HYPOTENSION [None]
